FAERS Safety Report 5195841-X (Version None)
Quarter: 2007Q1

REPORT INFORMATION
  Report Type: 
  Country: None (occurrence: None)
  Receive Date: 20070102
  Receipt Date: 20061219
  Transmission Date: 20070707
  Serious: Yes (Death, Disabling)
  Sender: FDA-Public Use
  Company Number: JP-PFIZER INC-2006121284

PATIENT
  Sex: Female
  Weight: 45 kg

DRUGS (8)
  1. ZYVOX [Suspect]
     Indication: ENTEROCOCCAL INFECTION
     Route: 042
     Dates: start: 20051114, end: 20051116
  2. VANCOMYCIN [Concomitant]
     Dosage: DAILY DOSE:2000MG
     Route: 042
     Dates: start: 20051112, end: 20051115
  3. CIPROFLOXACIN HYDROCHLORIDE [Concomitant]
     Dosage: DAILY DOSE:300MG
     Route: 042
  4. CLINDAMYCIN HYDROCHLORIDE [Concomitant]
     Dosage: DAILY DOSE:1200MG
     Route: 042
     Dates: start: 20051108
  5. VFEND [Concomitant]
     Dosage: DAILY DOSE:150MG
     Route: 042
     Dates: start: 20051104, end: 20051109
  6. MEROPENEM TRIHYDRATE [Concomitant]
     Dosage: DAILY DOSE:3000MG
     Route: 042
     Dates: start: 20051102, end: 20051106
  7. DIGOSIN [Concomitant]
     Route: 042
     Dates: start: 20051024, end: 20051113
  8. LASIX [Concomitant]
     Dates: start: 20051006

REACTIONS (5)
  - LIVER DISORDER [None]
  - MULTI-ORGAN FAILURE [None]
  - PLATELET COUNT DECREASED [None]
  - RENAL DISORDER [None]
  - SEPSIS [None]
